FAERS Safety Report 8073007-3 (Version None)
Quarter: 2011Q4

REPORT INFORMATION
  Report Type: 
  Country: None (occurrence: None)
  Receive Date: 20111221
  Receipt Date: 20110831
  Transmission Date: 20120403
  Serious: Yes (Other)
  Sender: FDA-Public Use
  Company Number: PHEH2011US03132

PATIENT
  Age: 10 Year
  Sex: Female

DRUGS (1)
  1. EXJADE [Suspect]
     Indication: IRON METABOLISM DISORDER
     Dosage: 1000 MG, UNK, ORAL
     Route: 048
     Dates: start: 20081201

REACTIONS (1)
  - RENAL IMPAIRMENT [None]
